FAERS Safety Report 19312968 (Version 1)
Quarter: 2021Q2

REPORT INFORMATION
  Report Type: Spontaneous
  Country: US (occurrence: US)
  Receive Date: 20210527
  Receipt Date: 20210527
  Transmission Date: 20210717
  Serious: Yes (Other)
  Sender: FDA-Public Use
  Company Number: US-ADVANZ PHARMA-202105003723

PATIENT

DRUGS (2)
  1. PENTOSAN POLYSULFATE [Suspect]
     Active Substance: PENTOSAN POLYSULFATE
     Dosage: 400 MG, QD (18?YEAR EXPOSURE, DOSE BY BODY WEIGHT 7.02 MG/KG, CUMULATIVE DOSAGE 2628 G)
     Route: 065
  2. HYDROXYCHLOROQUINE [Suspect]
     Active Substance: HYDROXYCHLOROQUINE
     Indication: PRODUCT USED FOR UNKNOWN INDICATION
     Dosage: 400 MG, QD (PLAQUENIL)
     Route: 065

REACTIONS (5)
  - Eye disorder [Unknown]
  - Photopsia [Unknown]
  - Toxicity to various agents [Unknown]
  - Delayed dark adaptation [Unknown]
  - Maculopathy [Unknown]
